FAERS Safety Report 7487885-X (Version None)
Quarter: 2011Q2

REPORT INFORMATION
  Report Type: 
  Country: None (occurrence: None)
  Receive Date: 20110518
  Receipt Date: 20110505
  Transmission Date: 20111010
  Serious: Yes (Other)
  Sender: FDA-Public Use
  Company Number: US-JNJFOC-20100104759

PATIENT
  Sex: Female
  Weight: 76.2 kg

DRUGS (16)
  1. TYLENOL-500 [Suspect]
     Indication: ARTHRITIS
     Dosage: 2-3 TIMES DAILY AS NEEDED FOR 2 YEARS THEN INCREASED TO 4 TIMES, THEN DECREASED TO 1 CAPLET 4 TIMES
     Route: 048
     Dates: end: 20091230
  2. HYZAAR [Concomitant]
     Indication: BLOOD PRESSURE
     Dosage: 50-12.MG
     Route: 048
     Dates: start: 20000101
  3. COZAAR [Concomitant]
     Indication: BLOOD PRESSURE
     Route: 048
     Dates: start: 20000101
  4. ALENDRONATE SODIUM [Concomitant]
     Indication: BONE DENSITY ABNORMAL
     Route: 048
  5. ALBUTEROL [Concomitant]
     Dosage: 90MCG/2PUFFS
     Route: 055
     Dates: start: 20090601
  6. CENTRUM SILVER [Concomitant]
     Route: 048
  7. TYLENOL-500 [Suspect]
     Route: 048
  8. QVAR 40 [Concomitant]
     Dosage: 80MCG/2 PUFFS
     Route: 048
     Dates: start: 20090601
  9. LEVOXYL [Concomitant]
     Indication: THYROID DISORDER
     Dosage: 100MCG
     Route: 048
     Dates: start: 19770101
  10. ENSURE [Concomitant]
  11. LIPITOR [Concomitant]
     Indication: BLOOD CHOLESTEROL
     Route: 048
     Dates: start: 20000101
  12. JANTOVEN [Concomitant]
     Indication: ANTICOAGULANT THERAPY
     Dosage: 2.5 OR 2.1
     Route: 048
     Dates: start: 20000101
  13. PROTONIX [Concomitant]
     Route: 048
  14. TRAMADOL HCL [Concomitant]
  15. LANOXIN [Concomitant]
     Indication: CARDIAC DISORDER
     Dosage: 250MCG
     Route: 048
     Dates: start: 20000101
  16. METOPROLOL SUCCINATE [Concomitant]
     Indication: BLOOD PRESSURE
     Route: 048
     Dates: start: 20000101

REACTIONS (5)
  - PRODUCT QUALITY ISSUE [None]
  - NAUSEA [None]
  - GASTROINTESTINAL PAIN [None]
  - DIARRHOEA [None]
  - WEIGHT DECREASED [None]
